FAERS Safety Report 15090695 (Version 1)
Quarter: 2018Q2

REPORT INFORMATION
  Report Type: Spontaneous
  Country: US (occurrence: US)
  Receive Date: 20180629
  Receipt Date: 20180629
  Transmission Date: 20180711
  Serious: No
  Sender: FDA-Public Use
  Company Number: US-GREER LABORATORIES, INC.-2051102

PATIENT
  Age: 35 Year
  Sex: Male

DRUGS (3)
  1. BAHIA GRASS POLLEN [Suspect]
     Active Substance: PASPALUM NOTATUM POLLEN
     Route: 058
     Dates: start: 20180507
  2. STANDARDIZED MITE MIX [Suspect]
     Active Substance: DERMATOPHAGOIDES FARINAE\DERMATOPHAGOIDES PTERONYSSINUS
     Route: 058
     Dates: start: 20180507
  3. STANDARDIZED ORCHARD GRASS [Suspect]
     Active Substance: DACTYLIS GLOMERATA POLLEN
     Route: 058
     Dates: start: 20180507

REACTIONS (4)
  - Injection site urticaria [Recovered/Resolved]
  - Dyspnoea [Recovered/Resolved]
  - Pruritus [Recovered/Resolved]
  - Pruritus [Recovered/Resolved]

NARRATIVE: CASE EVENT DATE: 20180507
